FAERS Safety Report 8136522-X (Version None)
Quarter: 2012Q1

REPORT INFORMATION
  Report Type: 
  Country: None (occurrence: None)
  Receive Date: 20120214
  Receipt Date: 20120201
  Transmission Date: 20120608
  Serious: Yes (Other)
  Sender: FDA-Public Use
  Company Number: PHHY2012AU008672

PATIENT

DRUGS (1)
  1. CLOZARIL [Suspect]

REACTIONS (3)
  - PSYCHOTIC DISORDER [None]
  - HYPERSENSITIVITY [None]
  - NEUTROPENIA [None]
